FAERS Safety Report 11456403 (Version 2)
Quarter: 2015Q4

REPORT INFORMATION
  Report Type: Spontaneous
  Country: US (occurrence: US)
  Receive Date: 20150903
  Receipt Date: 20151027
  Transmission Date: 20160304
  Serious: Yes (Other)
  Sender: FDA-Public Use
  Company Number: US-GLAXOSMITHKLINE-US2015125602

PATIENT
  Age: 65 Year
  Sex: Male

DRUGS (6)
  1. L-LYSINE [Concomitant]
     Active Substance: LYSINE
  2. BREO ELLIPTA [Suspect]
     Active Substance: FLUTICASONE FUROATE\VILANTEROL TRIFENATATE
     Indication: PULMONARY CONGESTION
     Dosage: 1 PUFF(S), PRN
     Route: 055
     Dates: start: 20150812
  3. HYDROCHLOROTHIAZIDE. [Concomitant]
     Active Substance: HYDROCHLOROTHIAZIDE
  4. PROLINE [Concomitant]
     Active Substance: PROLINE
  5. SELENIUM [Concomitant]
     Active Substance: SELENIUM
  6. RED YEAST RICE [Concomitant]
     Active Substance: DIETARY SUPPLEMENT

REACTIONS (5)
  - Productive cough [Not Recovered/Not Resolved]
  - Pulmonary congestion [Unknown]
  - Drug ineffective [Recovering/Resolving]
  - Dysphonia [Not Recovered/Not Resolved]
  - Product quality issue [Unknown]

NARRATIVE: CASE EVENT DATE: 201508
